FAERS Safety Report 14449449 (Version 2)
Quarter: 2018Q1

REPORT INFORMATION
  Report Type: Report from Study
  Country: None (occurrence: GB)
  Receive Date: 20180127
  Receipt Date: 20180201
  Transmission Date: 20180509
  Serious: Yes (Death, Hospitalization)
  Sender: FDA-Public Use
  Company Number: GB-ABBVIE-18K-167-2236197-00

PATIENT
  Age: 70 Year
  Sex: Male

DRUGS (1)
  1. DUODOPA [Suspect]
     Active Substance: CARBIDOPA\LEVODOPA
     Indication: PRODUCT USED FOR UNKNOWN INDICATION
     Route: 050

REACTIONS (5)
  - Malaise [Not Recovered/Not Resolved]
  - Death [Fatal]
  - Pneumonia aspiration [Not Recovered/Not Resolved]
  - Device dislocation [Unknown]
  - Off label use [Unknown]

NARRATIVE: CASE EVENT DATE: 20180128
